FAERS Safety Report 11489729 (Version 2)
Quarter: 2015Q3

REPORT INFORMATION
  Report Type: Spontaneous
  Country: TR (occurrence: TR)
  Receive Date: 20150910
  Receipt Date: 20150911
  Transmission Date: 20151125
  Serious: Yes (Other)
  Sender: FDA-Public Use
  Company Number: TR-GLAXOSMITHKLINE-TR2015GSK128949

PATIENT
  Age: 42 Year
  Sex: Male

DRUGS (1)
  1. QUETIAPINE [Suspect]
     Active Substance: QUETIAPINE
     Indication: BIPOLAR DISORDER
     Dosage: 300 MG, QD
     Route: 065

REACTIONS (9)
  - Balance disorder [Unknown]
  - Dysarthria [Unknown]
  - Brain stem stroke [Recovering/Resolving]
  - Blood cholesterol increased [Recovered/Resolved]
  - Ataxia [Unknown]
  - Sensory loss [Unknown]
  - Blood triglycerides increased [Recovered/Resolved]
  - Gait disturbance [Unknown]
  - Diplopia [Unknown]
